FAERS Safety Report 18300635 (Version 1)
Quarter: 2020Q3

REPORT INFORMATION
  Report Type: Spontaneous
  Country: US (occurrence: US)
  Receive Date: 20200923
  Receipt Date: 20200923
  Transmission Date: 20201103
  Serious: Yes (Other)
  Sender: FDA-Public Use
  Company Number: None

PATIENT
  Age: 83 Year
  Sex: Female
  Weight: 80.64 kg

DRUGS (10)
  1. PEPCID AC [Concomitant]
     Active Substance: FAMOTIDINE
  2. MULTIVITAMIN [Concomitant]
     Active Substance: VITAMINS
  3. IBRANCE [Suspect]
     Active Substance: PALBOCICLIB
     Indication: BREAST CANCER
     Route: 048
     Dates: start: 20200709
  4. FISH OIL [Concomitant]
     Active Substance: FISH OIL
  5. NORVASC [Concomitant]
     Active Substance: AMLODIPINE BESYLATE
  6. ANASTROZOLE. [Concomitant]
     Active Substance: ANASTROZOLE
  7. TYLENOL EXTRA STRENGTH [Concomitant]
     Active Substance: ACETAMINOPHEN
  8. LOVASTATIN. [Concomitant]
     Active Substance: LOVASTATIN
  9. CALCIUM?MAGNESIUM?ZINC [Concomitant]
  10. VITAMIN D3 [Concomitant]
     Active Substance: CHOLECALCIFEROL

REACTIONS (1)
  - Blood creatinine decreased [None]

NARRATIVE: CASE EVENT DATE: 20200923
